FAERS Safety Report 16128286 (Version 1)
Quarter: 2019Q1

REPORT INFORMATION
  Report Type: Spontaneous
  Country: US (occurrence: US)
  Receive Date: 20190223
  Receipt Date: 20190223
  Transmission Date: 20190418
  Serious: Yes (Death, Hospitalization)
  Sender: FDA-Public Use
  Company Number: None

PATIENT
  Age: 6 Year
  Sex: Female
  Weight: 21.9 kg

DRUGS (5)
  1. DAUNORUBICIN [Suspect]
     Active Substance: DAUNORUBICIN
     Dates: end: 20190207
  2. DEXAMETHASONE. [Suspect]
     Active Substance: DEXAMETHASONE
     Dates: end: 20190209
  3. ONCASPAR [Suspect]
     Active Substance: PEGASPARGASE
     Dates: end: 20190203
  4. VINCRISTINE SULFATE. [Suspect]
     Active Substance: VINCRISTINE SULFATE
     Dates: end: 20190207
  5. CYTARABINE. [Suspect]
     Active Substance: CYTARABINE
     Dates: end: 20190131

REACTIONS (14)
  - Bradycardia [None]
  - Lactic acidosis [None]
  - Faeces hard [None]
  - Hypoxia [None]
  - Respiratory failure [None]
  - Ascites [None]
  - Constipation [None]
  - Musculoskeletal stiffness [None]
  - Hypotension [None]
  - Abdominal pain [None]
  - Vomiting [None]
  - Septic shock [None]
  - Colitis [None]
  - Unresponsive to stimuli [None]

NARRATIVE: CASE EVENT DATE: 20190210
